FAERS Safety Report 19106791 (Version 1)
Quarter: 2021Q2

REPORT INFORMATION
  Report Type: Spontaneous
  Country: US (occurrence: US)
  Receive Date: 20210407
  Receipt Date: 20210407
  Transmission Date: 20210717
  Serious: No
  Sender: FDA-Public Use
  Company Number: None

PATIENT
  Age: 43 Year
  Sex: Female

DRUGS (11)
  1. AIMOVIG [Concomitant]
     Active Substance: ERENUMAB-AOOE
  2. FLOVENT [Concomitant]
     Active Substance: FLUTICASONE PROPIONATE
  3. PANTOPRAZOLE SOD DR 40 MG TAB [Suspect]
     Active Substance: PANTOPRAZOLE SODIUM
     Indication: EOSINOPHILIC OESOPHAGITIS
     Dosage: ?          QUANTITY:1 TABLET(S);?
     Route: 048
  4. CALCIUM [Concomitant]
     Active Substance: CALCIUM
  5. TEMAZEPAM. [Concomitant]
     Active Substance: TEMAZEPAM
  6. IUD (MIRENA) [Concomitant]
  7. ZOFRAN [Concomitant]
     Active Substance: ONDANSETRON HYDROCHLORIDE
  8. VITAMIN D [Concomitant]
     Active Substance: VITAMIN D NOS
  9. NORTRIPTYLINE [Concomitant]
     Active Substance: NORTRIPTYLINE
  10. PROPRANALOL [Concomitant]
     Active Substance: PROPRANOLOL HYDROCHLORIDE
  11. MAGNESIUM [Concomitant]
     Active Substance: MAGNESIUM

REACTIONS (1)
  - Constipation [None]
